FAERS Safety Report 17231861 (Version 2)
Quarter: 2020Q1

REPORT INFORMATION
  Report Type: Spontaneous
  Country: US (occurrence: US)
  Receive Date: 20200103
  Receipt Date: 20200106
  Transmission Date: 20200409
  Serious: No
  Sender: FDA-Public Use
  Company Number: US-PFIZER INC-2020000505

PATIENT
  Age: 57 Year
  Sex: Male
  Weight: 81.65 kg

DRUGS (1)
  1. SILDENAFIL CITRATE. [Suspect]
     Active Substance: SILDENAFIL CITRATE
     Indication: HEREDITARY MOTOR AND SENSORY NEUROPATHY
     Dosage: 100 MG, UNK (EVERY COUPLE OF WEEKS)
     Route: 048

REACTIONS (2)
  - Drug ineffective for unapproved indication [Unknown]
  - Off label use [Unknown]
